FAERS Safety Report 11745046 (Version 1)
Quarter: 2015Q4

REPORT INFORMATION
  Report Type: Report from Study
  Country: US (occurrence: US)
  Receive Date: 20151117
  Receipt Date: 20151117
  Transmission Date: 20160304
  Serious: Yes (Other)
  Sender: FDA-Public Use
  Company Number: US-CIPLA LTD.-2015US08570

PATIENT

DRUGS (5)
  1. DARUNAVIR [Suspect]
     Active Substance: DARUNAVIR
     Route: 064
  2. RILPIVIRINE [Suspect]
     Active Substance: RILPIVIRINE
     Route: 064
  3. ZIDOVUDINE. [Suspect]
     Active Substance: ZIDOVUDINE
     Route: 064
  4. EMTRICITABINE [Suspect]
     Active Substance: EMTRICITABINE
     Route: 064
  5. TENOFOVIR DISOPROXIL FUMARATE. [Suspect]
     Active Substance: TENOFOVIR DISOPROXIL FUMARATE
     Route: 064

REACTIONS (4)
  - Meconium stain [Unknown]
  - Vomiting [Recovered/Resolved]
  - Jaundice [Unknown]
  - Weight decreased [Unknown]

NARRATIVE: CASE EVENT DATE: 201508
